FAERS Safety Report 4505987-4 (Version None)
Quarter: 2004Q4

REPORT INFORMATION
  Report Type: 
  Country: None (occurrence: None)
  Receive Date: 20041025
  Receipt Date: 20040108
  Transmission Date: 20050328
  Serious: Yes (Disabling, Other)
  Sender: FDA-Public Use
  Company Number: US-JNJFOC-20031000133

PATIENT
  Age: 57 Year
  Sex: Female
  Weight: 68.0396 kg

DRUGS (7)
  1. REMICADE [Suspect]
     Indication: RHEUMATOID ARTHRITIS
     Dosage: 3 VIALS
     Dates: start: 20020927
  2. PAXIL [Concomitant]
  3. LEBOXYL (OPINO-RETARD) [Concomitant]
  4. METHOTREXATE [Concomitant]
  5. PREMARIN [Concomitant]
  6. KLONOPIN [Concomitant]
  7. SELDENE (ALL OTHER THERAPEUTIC PRODUCTS) [Concomitant]

REACTIONS (1)
  - RHEUMATOID ARTHRITIS [None]
